FAERS Safety Report 26209237 (Version 1)
Quarter: 2025Q4

REPORT INFORMATION
  Report Type: Spontaneous
  Country: US (occurrence: US)
  Receive Date: 20251229
  Receipt Date: 20251229
  Transmission Date: 20260117
  Serious: Yes (Hospitalization, Other)
  Sender: NOVO NORDISK
  Company Number: US-NOVOPROD-1590484

PATIENT
  Age: 82 Year
  Sex: Male

DRUGS (2)
  1. NOVOLOG [Suspect]
     Active Substance: INSULIN ASPART
     Dosage: 6 U BEFORE MEALS
     Route: 058
  2. NOVOLOG [Suspect]
     Active Substance: INSULIN ASPART
     Indication: Type 2 diabetes mellitus
     Dosage: 5 UNITS BEFORE MEALS
     Route: 058
     Dates: start: 2000

REACTIONS (7)
  - Cerebrovascular accident [Unknown]
  - Arrhythmia [Unknown]
  - Surgery [Unknown]
  - Cardiac pacemaker insertion [Unknown]
  - Blood glucose increased [Unknown]
  - Fluid retention [Unknown]
  - Unevaluable event [Unknown]

NARRATIVE: CASE EVENT DATE: 20251001
